FAERS Safety Report 9238009 (Version 1)
Quarter: 2013Q2

REPORT INFORMATION
  Report Type: Spontaneous
  Country: US (occurrence: None)
  Receive Date: 20130404
  Receipt Date: 20130404
  Transmission Date: 20140414
  Serious: Yes (Hospitalization)
  Sender: FDA-Public Use
  Company Number: 2013PROUSA02539

PATIENT
  Age: 61 Year
  Sex: Male
  Weight: 177.8 kg

DRUGS (11)
  1. PROVENGE (SIPULEUCEL-T) SUSPENSION, 250 ML [Suspect]
     Indication: PROSTATE CANCER METASTATIC
     Dosage: 250 ML, SINGLE, INTRAVENOUS
     Route: 042
     Dates: start: 20130111, end: 20130111
  2. ASPIRIN (ACETYLSALICYLIC ACID) [Concomitant]
  3. FLOMAX (TAMSULOSIN HYDROCHLORIDE) [Concomitant]
  4. PRINIVIL (LISINOPRIL DIHYDRATE) [Concomitant]
  5. OMEPRAZOLE (OMEPRAZOLE) [Concomitant]
  6. LEVEMIR (INSULIN DETEMIR) [Concomitant]
  7. ZOCOR (SIMVASTATIN) [Concomitant]
  8. CALCIUM PLUS VITAMIN D (CALCIUM, COLECALCIFEROL) [Concomitant]
  9. MULTIVITAMINS (ASCORBIC ACID, ERGOCALCIFEROL, FOLIC ACID, NICITONAMIDE, PANTHENOL, RETINOL, RIBOFLAVIN, THIAMINE HYDROCHLORIDE) [Concomitant]
  10. CO Q-10 (UBIDECARENONE) [Concomitant]
  11. TYLENOL EXTRA-STRENGTH (PARACETAMOL) [Concomitant]

REACTIONS (11)
  - Sepsis [None]
  - Device related infection [None]
  - Rhinorrhoea [None]
  - Chest pain [None]
  - Dysgeusia [None]
  - Dysgeusia [None]
  - Cough [None]
  - Back pain [None]
  - Decreased appetite [None]
  - Blood culture positive [None]
  - Staphylococcal infection [None]
